FAERS Safety Report 12929863 (Version 1)
Quarter: 2016Q4

REPORT INFORMATION
  Report Type: Report from Study
  Country: None (occurrence: DE)
  Receive Date: 20161110
  Receipt Date: 20161110
  Transmission Date: 20170207
  Serious: Yes (Other)
  Sender: FDA-Public Use
  Company Number: DE-ABBVIE-16K-062-1773920-00

PATIENT
  Age: 35 Year
  Sex: Male

DRUGS (4)
  1. HUMIRA [Suspect]
     Active Substance: ADALIMUMAB
     Indication: CROHN^S DISEASE
     Route: 058
     Dates: start: 20160725
  2. SULFALAZIN [Concomitant]
     Indication: PRODUCT USED FOR UNKNOWN INDICATION
  3. AZATHIOPRIN [Concomitant]
     Active Substance: AZATHIOPRINE
     Indication: PRODUCT USED FOR UNKNOWN INDICATION
  4. BUDENOFALK [Concomitant]
     Active Substance: BUDESONIDE
     Indication: PRODUCT USED FOR UNKNOWN INDICATION

REACTIONS (3)
  - Abdominal adhesions [Not Recovered/Not Resolved]
  - Constipation [Not Recovered/Not Resolved]
  - Intestinal stenosis [Not Recovered/Not Resolved]

NARRATIVE: CASE EVENT DATE: 20161029
